FAERS Safety Report 11394914 (Version 3)
Quarter: 2015Q4

REPORT INFORMATION
  Report Type: Spontaneous
  Country: US (occurrence: US)
  Receive Date: 20150819
  Receipt Date: 20151012
  Transmission Date: 20160304
  Serious: Yes (Other)
  Sender: FDA-Public Use
  Company Number: US-ASTELLAS-2015US029169

PATIENT
  Sex: Female

DRUGS (1)
  1. TARCEVA [Suspect]
     Active Substance: ERLOTINIB HYDROCHLORIDE
     Indication: LUNG NEOPLASM MALIGNANT
     Dosage: 150 MG, 1 IN 1 D
     Route: 048
     Dates: start: 20150718

REACTIONS (3)
  - Dementia Alzheimer^s type [Unknown]
  - Drug dose omission [Unknown]
  - No adverse event [Unknown]
